FAERS Safety Report 8181595-1 (Version None)
Quarter: 2012Q1

REPORT INFORMATION
  Report Type: 
  Country: None (occurrence: None)
  Receive Date: 20120302
  Receipt Date: 20120222
  Transmission Date: 20120608
  Serious: Yes (Hospitalization)
  Sender: FDA-Public Use
  Company Number: JP-ELI_LILLY_AND_COMPANY-JP201108005121

PATIENT
  Age: 85 Year
  Sex: Male

DRUGS (8)
  1. DAIKENTYUTO [Concomitant]
     Route: 048
  2. ALPRAZOLAM [Concomitant]
     Route: 048
  3. IRON PREPARATIONS [Concomitant]
     Route: 048
  4. FORTEO [Suspect]
     Indication: OSTEOPOROSIS
     Dosage: UNK
     Route: 058
     Dates: start: 20110401
  5. MERISLON [Concomitant]
     Indication: DIZZINESS
     Route: 048
  6. LAXATIVES [Concomitant]
     Route: 048
  7. ADENOSINE [Concomitant]
     Route: 048
  8. RONFLEMAN [Concomitant]
     Route: 048

REACTIONS (3)
  - ABDOMINAL DISCOMFORT [None]
  - LIVER FUNCTION TEST ABNORMAL [None]
  - HOSPITALISATION [None]
